FAERS Safety Report 7876955-X (Version None)
Quarter: 2011Q4

REPORT INFORMATION
  Report Type: 
  Country: None (occurrence: None)
  Receive Date: 20111031
  Receipt Date: 20110804
  Transmission Date: 20120403
  Serious: Yes (Life-Threatening, Hospitalization, Other)
  Sender: FDA-Public Use
  Company Number: PHHY2009SI68720

PATIENT
  Sex: Female
  Weight: 70 kg

DRUGS (2)
  1. RANITAL [Concomitant]
     Dosage: 150 MG, UNK
     Route: 048
     Dates: start: 20030101, end: 20041113
  2. KETOPROFEN [Suspect]
     Indication: SKIN ULCER
     Dosage: 150 MG, UNK
     Route: 048
     Dates: start: 20030101, end: 20041113

REACTIONS (4)
  - METABOLIC ACIDOSIS [None]
  - RENAL FAILURE ACUTE [None]
  - ANAEMIA [None]
  - MELAENA [None]
